FAERS Safety Report 9519757 (Version 1)
Quarter: 2013Q1

REPORT INFORMATION
  Report Type: Spontaneous
  Country: US (occurrence: None)
  Receive Date: 20130305
  Receipt Date: 20130305
  Transmission Date: 20140127
  Serious: Yes (Hospitalization, Other)
  Sender: FDA-Public Use
  Company Number: 163-21880-12010944

PATIENT
  Age: 76 Year
  Sex: Male

DRUGS (8)
  1. REVLIMID [Suspect]
     Indication: MYELODYSPLASTIC SYNDROME
     Dosage: 10 MG, 1 IN 1 D, PO
     Route: 048
     Dates: start: 201108, end: 20111206
  2. WARFARIN ( WARFARIN) (UNKNOWN) [Concomitant]
  3. METOPROLOL (METOPROLOL) (UNKNOWN) [Concomitant]
  4. KCL (POTASSIUM CHLORIDE) (UNKNOWN) [Concomitant]
  5. FUROSEMIDE (FUROSEMIDE) (UNKNOWN) [Concomitant]
  6. ASA (ACETYLSALICYLIC ACID) (UNKNOWN) [Concomitant]
  7. LOVASTATIN (LOVASTATIN) (UNKNOWN) [Concomitant]
  8. FLUTICASONE (FLUTICASONE) (NASAL DROPS (INCLUDING NASAL SPRAY)? [Concomitant]

REACTIONS (4)
  - Pneumonia [None]
  - Hypoxia [None]
  - Atrial fibrillation [None]
  - Neutrophil count decreased [None]
